FAERS Safety Report 7007469-7 (Version None)
Quarter: 2010Q3

REPORT INFORMATION
  Report Type: 
  Country: None (occurrence: None)
  Receive Date: 20100920
  Receipt Date: 20100913
  Transmission Date: 20110219
  Serious: Yes (Death, Hospitalization)
  Sender: FDA-Public Use
  Company Number: CM10-0034

PATIENT
  Age: 91 Year
  Sex: Female
  Weight: 64 kg

DRUGS (3)
  1. CLEVIDIPINE (CLEVIDIPINE) EMULSION FOR INFUSION [Suspect]
     Dosage: 4-16 ML, HR, INTRAVENOUS
     Route: 042
     Dates: start: 20100106, end: 20100106
  2. FUROSEMIDE [Suspect]
     Indication: CARDIAC FAILURE
     Dosage: 80 MG/DAY
     Dates: start: 20100120, end: 20100123
  3. FUROSEMIDE [Suspect]
     Indication: HYPERTENSION
     Dosage: 80 MG/DAY
     Dates: start: 20100120, end: 20100123

REACTIONS (5)
  - CARDIAC FAILURE [None]
  - DYSPNOEA [None]
  - FALL [None]
  - FEMUR FRACTURE [None]
  - RALES [None]
